FAERS Safety Report 23365504 (Version 1)
Quarter: 2024Q1

REPORT INFORMATION
  Report Type: Spontaneous
  Country: US (occurrence: US)
  Receive Date: 20240104
  Receipt Date: 20240104
  Transmission Date: 20240410
  Serious: No
  Sender: FDA-Public Use
  Company Number: US-AMNEAL PHARMACEUTICALS-2023-AMRX-03070

PATIENT
  Age: 52 Year
  Sex: Female
  Weight: 90.7 kg

DRUGS (9)
  1. ACTIVELLA [Suspect]
     Active Substance: ESTRADIOL\NORETHINDRONE ACETATE
     Indication: Uterine leiomyoma
     Dosage: 1 MG/0.5 MILLIGRAM, EVERY 1 DAYS
     Route: 048
     Dates: start: 20200914
  2. ACTIVELLA [Suspect]
     Active Substance: ESTRADIOL\NORETHINDRONE ACETATE
     Dosage: 1 MG/0.5 MILLIGRAM, EVERY 1 DAYS
     Route: 048
     Dates: start: 20191007, end: 20200914
  3. ELAGOLIX [Suspect]
     Active Substance: ELAGOLIX
     Indication: Uterine leiomyoma
     Dosage: 300 MILLIGRAM, EVERY 1 DAYS
     Route: 048
     Dates: start: 20200914
  4. ELAGOLIX [Suspect]
     Active Substance: ELAGOLIX
     Dosage: 300 MILLIGRAM, EVERY 1 DAYS
     Route: 048
     Dates: start: 20191007, end: 20200914
  5. TYLENOL [Concomitant]
     Active Substance: ACETAMINOPHEN
     Indication: Migraine
     Dosage: 500 MG, AS NCEESSARY
     Route: 065
     Dates: start: 1997
  6. ZOLOFT [Concomitant]
     Active Substance: SERTRALINE HYDROCHLORIDE
     Indication: Anxiety
     Dosage: 50 MG, QD
     Route: 065
     Dates: start: 2018
  7. METOPROLOL [Concomitant]
     Active Substance: METOPROLOL
     Indication: Supraventricular tachycardia
     Dosage: 50 MG, QD
     Route: 065
     Dates: start: 201901
  8. MULTIVITAMIN [ASCORBIC ACID;NICOTINAMIDE;RETINOL;RIBOFLAVIN;THIAMINE;V [Concomitant]
     Indication: Vitamin D decreased
     Dosage: 1000 IU, QD
     Route: 065
     Dates: start: 20190815
  9. ERGOCALCIFEROL [Concomitant]
     Active Substance: ERGOCALCIFEROL
     Indication: Vitamin D decreased
     Dosage: 1000 IU, EVERY 1 DAYS
     Route: 065
     Dates: start: 20190815

REACTIONS (1)
  - Bone density decreased [Not Recovered/Not Resolved]

NARRATIVE: CASE EVENT DATE: 20230612
